FAERS Safety Report 7917089-5 (Version None)
Quarter: 2011Q4

REPORT INFORMATION
  Report Type: 
  Country: None (occurrence: None)
  Receive Date: 20111114
  Receipt Date: 20111103
  Transmission Date: 20120403
  Serious: Yes (Hospitalization)
  Sender: FDA-Public Use
  Company Number: 126076

PATIENT
  Age: 2 Year
  Sex: Male

DRUGS (1)
  1. LEVOTHYROXINE SODIUM [Suspect]
     Dosage: 700 MICROGRAMS/KILOGRAM

REACTIONS (13)
  - THIRST [None]
  - DECREASED APPETITE [None]
  - ALOPECIA [None]
  - MEDICATION ERROR [None]
  - TACHYCARDIA [None]
  - SINUS TACHYCARDIA [None]
  - TOXICITY TO VARIOUS AGENTS [None]
  - IRRITABILITY [None]
  - OVERDOSE [None]
  - AGITATION [None]
  - BODY TEMPERATURE INCREASED [None]
  - SKIN EXFOLIATION [None]
  - PYREXIA [None]
